FAERS Safety Report 12649962 (Version 2)
Quarter: 2016Q4

REPORT INFORMATION
  Report Type: Spontaneous
  Country: JP (occurrence: JP)
  Receive Date: 20160813
  Receipt Date: 20161012
  Transmission Date: 20170207
  Serious: Yes (Hospitalization, Other)
  Sender: FDA-Public Use
  Company Number: JP-AMGEN-JPNSP2016105559

PATIENT
  Age: 66 Year
  Sex: Female

DRUGS (16)
  1. G-LASTA [Suspect]
     Active Substance: PEGFILGRASTIM
     Indication: COLONY STIMULATING FACTOR PROPHYLAXIS
     Dosage: UNK
     Route: 058
     Dates: start: 2015, end: 2015
  2. 5-FU [Suspect]
     Active Substance: FLUOROURACIL
     Dosage: 500 MG/M2, UNK
     Route: 041
     Dates: start: 2015, end: 2015
  3. EPIRUBICIN HYDROCHLORIDE. [Suspect]
     Active Substance: EPIRUBICIN HYDROCHLORIDE
     Dosage: 75 MG/M2, UNK
     Route: 041
     Dates: start: 2015
  4. EPIRUBICIN HYDROCHLORIDE. [Suspect]
     Active Substance: EPIRUBICIN HYDROCHLORIDE
     Dosage: 75 MG/M2, UNK
     Route: 041
  5. EPIRUBICIN HYDROCHLORIDE. [Suspect]
     Active Substance: EPIRUBICIN HYDROCHLORIDE
     Dosage: 75 MG/M2, UNK
     Route: 041
     Dates: start: 2015, end: 2015
  6. CYCLOPHOSPHAMIDE MONOHYDRATE [Suspect]
     Active Substance: CYCLOPHOSPHAMIDE
     Indication: PRODUCT USED FOR UNKNOWN INDICATION
     Dosage: 500 MG/M2, UNK
     Route: 041
  7. 5-FU [Suspect]
     Active Substance: FLUOROURACIL
     Dosage: 500 MG/M2, UNK
     Route: 041
     Dates: start: 2015
  8. G-LASTA [Suspect]
     Active Substance: PEGFILGRASTIM
     Dosage: UNK
     Route: 058
     Dates: start: 2015, end: 2015
  9. 5-FU [Suspect]
     Active Substance: FLUOROURACIL
     Indication: PRODUCT USED FOR UNKNOWN INDICATION
     Dosage: 500 MG/M2, UNK
     Route: 041
  10. 5-FU [Suspect]
     Active Substance: FLUOROURACIL
     Dosage: 500 MG/M2, UNK
     Route: 041
  11. EPIRUBICIN HYDROCHLORIDE. [Suspect]
     Active Substance: EPIRUBICIN HYDROCHLORIDE
     Indication: PRODUCT USED FOR UNKNOWN INDICATION
     Dosage: 100 MG/M2, UNK
     Route: 041
  12. CYCLOPHOSPHAMIDE MONOHYDRATE [Suspect]
     Active Substance: CYCLOPHOSPHAMIDE
     Dosage: 500 MG/M2, UNK
     Route: 041
     Dates: start: 2015
  13. LEVOFLOXACIN HEMIHYDRATE [Concomitant]
     Active Substance: LEVOFLOXACIN
     Indication: PYREXIA
     Dosage: UNK
     Route: 048
  14. CYCLOPHOSPHAMIDE MONOHYDRATE [Suspect]
     Active Substance: CYCLOPHOSPHAMIDE
     Dosage: 500 MG/M2, UNK
     Route: 041
     Dates: start: 2015, end: 2015
  15. CYCLOPHOSPHAMIDE MONOHYDRATE [Suspect]
     Active Substance: CYCLOPHOSPHAMIDE
     Dosage: 500 MG/M2, UNK
     Route: 041
  16. G-LASTA [Suspect]
     Active Substance: PEGFILGRASTIM
     Dosage: UNK
     Route: 058
     Dates: start: 2015, end: 2015

REACTIONS (3)
  - Febrile neutropenia [Recovered/Resolved]
  - Pancytopenia [Unknown]
  - Febrile neutropenia [Unknown]
